FAERS Safety Report 6172193-X (Version None)
Quarter: 2009Q2

REPORT INFORMATION
  Report Type: 
  Country: None (occurrence: None)
  Receive Date: 20090429
  Receipt Date: 20090423
  Transmission Date: 20091009
  Serious: Yes (Other)
  Sender: FDA-Public Use
  Company Number: US-JNJCH-2009011430

PATIENT
  Age: 69 Year
  Sex: Female

DRUGS (1)
  1. TUCKS PRE-MOISTENED PADS [Suspect]
     Indication: HAEMORRHOIDS
     Dosage: TEXT:ONE PAD ONCE
     Route: 061
     Dates: start: 20090401, end: 20090401

REACTIONS (1)
  - APPLICATION SITE IRRITATION [None]
